FAERS Safety Report 6840182-5 (Version None)
Quarter: 2010Q3

REPORT INFORMATION
  Report Type: 
  Country: None (occurrence: None)
  Receive Date: 20100714
  Receipt Date: 20100702
  Transmission Date: 20110219
  Serious: Yes (Other)
  Sender: FDA-Public Use
  Company Number: DE-AMGEN-KDL417148

PATIENT
  Sex: Female

DRUGS (2)
  1. VECTIBIX [Suspect]
     Indication: COLORECTAL CANCER
     Route: 042
     Dates: start: 20100201
  2. VITAMINS [Concomitant]

REACTIONS (24)
  - DRUG ERUPTION [None]
  - DRY EYE [None]
  - ERYTHEMA [None]
  - EYE INFLAMMATION [None]
  - EYELID INFECTION [None]
  - GLOSSODYNIA [None]
  - HAIR DISORDER [None]
  - HYPERTRICHOSIS [None]
  - ICHTHYOSIS [None]
  - INFLAMMATION [None]
  - NAIL GROWTH ABNORMAL [None]
  - NASAL INFLAMMATION [None]
  - OPEN WOUND [None]
  - PAIN [None]
  - PARAESTHESIA [None]
  - PARONYCHIA [None]
  - PHOTOSENSITIVITY REACTION [None]
  - SKIN BURNING SENSATION [None]
  - SKIN FISSURES [None]
  - SKIN ULCER [None]
  - STOMATITIS [None]
  - SWELLING FACE [None]
  - VAGINAL INFLAMMATION [None]
  - VAGINAL LACERATION [None]
